FAERS Safety Report 6531978-8 (Version None)
Quarter: 2010Q1

REPORT INFORMATION
  Report Type: 
  Country: None (occurrence: None)
  Receive Date: 20100107
  Receipt Date: 20100107
  Transmission Date: 20100710
  Serious: Yes (Life-Threatening)
  Sender: FDA-Public Use
  Company Number: None

PATIENT
  Age: 22 Year
  Sex: Female
  Weight: 67.1 kg

DRUGS (2)
  1. ALTEPLASE [Suspect]
     Indication: PULMONARY EMBOLISM
     Dosage: 100MG ONCE IV
     Route: 042
     Dates: end: 20100106
  2. ALTEPLASE [Suspect]
     Indication: SHOCK
     Dosage: 100MG ONCE IV
     Route: 042
     Dates: end: 20100106

REACTIONS (3)
  - CARDIO-RESPIRATORY ARREST [None]
  - CEREBRAL HAEMATOMA [None]
  - SHOCK [None]
